FAERS Safety Report 14224765 (Version 1)
Quarter: 2017Q4

REPORT INFORMATION
  Report Type: Spontaneous
  Country: FR (occurrence: FR)
  Receive Date: 20171127
  Receipt Date: 20171127
  Transmission Date: 20180321
  Serious: Yes (Death, Hospitalization)
  Sender: FDA-Public Use
  Company Number: FR-ACCORD-061432

PATIENT
  Age: 77 Year
  Sex: Male

DRUGS (5)
  1. FLUOROURACIL ACCORD [Suspect]
     Active Substance: FLUOROURACIL
     Indication: ADENOCARCINOMA GASTRIC
     Dosage: OVER 24 HOURS
     Route: 042
     Dates: start: 20170918, end: 201710
  2. FOLIC ACID. [Concomitant]
     Active Substance: FOLIC ACID
  3. KARDEGIC [Concomitant]
     Active Substance: ASPIRIN DL-LYSINE
     Dates: start: 20170918
  4. OXALIPLATIN  ACCORD [Suspect]
     Active Substance: OXALIPLATIN
     Indication: ADENOCARCINOMA GASTRIC
     Dosage: OVER ONE HOUR
     Route: 042
     Dates: start: 20170918, end: 20171002
  5. DOCETAXEL HOSPIRA [Suspect]
     Active Substance: DOCETAXEL
     Indication: ADENOCARCINOMA GASTRIC
     Dosage: OVER ONE HOUR
     Route: 042
     Dates: start: 20170918, end: 20171002

REACTIONS (3)
  - Off label use [None]
  - Gastrointestinal necrosis [Fatal]
  - Septic shock [Fatal]

NARRATIVE: CASE EVENT DATE: 201710
